FAERS Safety Report 6616053-6 (Version None)
Quarter: 2010Q1

REPORT INFORMATION
  Report Type: 
  Country: None (occurrence: None)
  Receive Date: 20100305
  Receipt Date: 20100224
  Transmission Date: 20100710
  Serious: Yes (Other)
  Sender: FDA-Public Use
  Company Number: B0631594A

PATIENT
  Age: 60 Year
  Sex: Female

DRUGS (1)
  1. ALLI [Suspect]
     Dosage: 60MG THREE TIMES PER DAY
     Route: 048
     Dates: start: 20090801, end: 20091101

REACTIONS (2)
  - ABSCESS [None]
  - INFLUENZA LIKE ILLNESS [None]
